FAERS Safety Report 23967582 (Version 1)
Quarter: 2024Q2

REPORT INFORMATION
  Report Type: Spontaneous
  Country: US (occurrence: None)
  Receive Date: 20240612
  Receipt Date: 20240612
  Transmission Date: 20240716
  Serious: No
  Sender: FDA-Public Use
  Company Number: None

PATIENT
  Age: 39 Year
  Sex: Male
  Weight: 126 kg

DRUGS (6)
  1. MOUNJARO [Suspect]
     Active Substance: TIRZEPATIDE
     Indication: Weight decreased
     Dosage: OTHER QUANTITY : 1 INJECTION(S);?OTHER FREQUENCY : 1 INJECTION PER WE;?
     Route: 058
     Dates: start: 20240101
  2. LOSARTAN [Concomitant]
     Active Substance: LOSARTAN
  3. ZOLOFT [Concomitant]
     Active Substance: SERTRALINE HYDROCHLORIDE
  4. METFORMIN [Concomitant]
     Active Substance: METFORMIN HYDROCHLORIDE
  5. VITAMIN D [Concomitant]
     Active Substance: VITAMIN D NOS
  6. CLARITIN [Concomitant]
     Active Substance: LORATADINE

REACTIONS (2)
  - Hyperaesthesia [None]
  - Pain [None]

NARRATIVE: CASE EVENT DATE: 20240604
